FAERS Safety Report 16217104 (Version 1)
Quarter: 2019Q2

REPORT INFORMATION
  Report Type: Spontaneous
  Country: US (occurrence: US)
  Receive Date: 20190419
  Receipt Date: 20190419
  Transmission Date: 20190711
  Serious: No
  Sender: FDA-Public Use
  Company Number: US-BAYER-2019-079138

PATIENT
  Age: 80 Year
  Sex: Male
  Weight: 99.77 kg

DRUGS (2)
  1. CLARITIN [Suspect]
     Active Substance: LORATADINE
     Indication: NASOPHARYNGITIS
  2. CLARITIN [Suspect]
     Active Substance: LORATADINE
     Indication: HYPERSENSITIVITY
     Dosage: 1 DF, QD
     Dates: start: 20190410

REACTIONS (3)
  - Dry mouth [Unknown]
  - Circumstance or information capable of leading to medication error [Unknown]
  - Dysphagia [Unknown]

NARRATIVE: CASE EVENT DATE: 20190411
